FAERS Safety Report 5714415-2 (Version None)
Quarter: 2008Q2

REPORT INFORMATION
  Report Type: 
  Country: None (occurrence: None)
  Receive Date: 20080423
  Receipt Date: 20020717
  Transmission Date: 20081010
  Serious: Yes (Death)
  Sender: FDA-Public Use
  Company Number: US-ROCHE-317556

PATIENT
  Age: 74 Year
  Sex: Male
  Weight: 84.4 kg

DRUGS (1)
  1. ISOTRETINOIN [Suspect]
     Indication: NON-SMALL CELL LUNG CANCER STAGE I
     Route: 048

REACTIONS (4)
  - CHEILITIS [None]
  - CONJUNCTIVITIS [None]
  - DEATH [None]
  - SKIN REACTION [None]
